FAERS Safety Report 8002192-4 (Version None)
Quarter: 2011Q4

REPORT INFORMATION
  Report Type: 
  Country: None (occurrence: None)
  Receive Date: 20111220
  Receipt Date: 20111213
  Transmission Date: 20120403
  Serious: Yes (Other)
  Sender: FDA-Public Use
  Company Number: 2011S1001489

PATIENT
  Sex: Male

DRUGS (4)
  1. LIVALO [Suspect]
     Dosage: 1 MG;1X;PO, 2 MG; 1X;PO
     Route: 048
     Dates: start: 20110823, end: 20110921
  2. LIVALO [Suspect]
     Dosage: 1 MG;1X;PO, 2 MG; 1X;PO
     Route: 048
     Dates: start: 20110207, end: 20110822
  3. NIASPAN [Concomitant]
  4. CEFTIN [Concomitant]

REACTIONS (2)
  - ASPARTATE AMINOTRANSFERASE INCREASED [None]
  - ALANINE AMINOTRANSFERASE INCREASED [None]
